FAERS Safety Report 13666485 (Version 1)
Quarter: 2017Q2

REPORT INFORMATION
  Report Type: Spontaneous
  Country: US (occurrence: US)
  Receive Date: 20170619
  Receipt Date: 20170619
  Transmission Date: 20170830
  Serious: No
  Sender: FDA-Public Use
  Company Number: US-ROCHE-1081547

PATIENT
  Sex: Female

DRUGS (1)
  1. XELODA [Suspect]
     Active Substance: CAPECITABINE
     Indication: PRODUCT USED FOR UNKNOWN INDICATION
     Route: 065

REACTIONS (9)
  - Constipation [Unknown]
  - Insomnia [Unknown]
  - Nail disorder [Unknown]
  - Nausea [Unknown]
  - Diarrhoea [Unknown]
  - Pruritus [Unknown]
  - Dizziness [Unknown]
  - Asthenia [Unknown]
  - Vomiting [Unknown]
